FAERS Safety Report 14606526 (Version 2)
Quarter: 2019Q4

REPORT INFORMATION
  Report Type: Spontaneous
  Country: NO (occurrence: NO)
  Receive Date: 20180307
  Receipt Date: 20191213
  Transmission Date: 20200122
  Serious: Yes (Disabling, Other)
  Sender: FDA-Public Use
  Company Number: NO-009507513-1802NOR014047

PATIENT
  Sex: Female

DRUGS (1)
  1. ATOZET [Suspect]
     Active Substance: ATORVASTATIN CALCIUM\EZETIMIBE
     Indication: TYPE IIA HYPERLIPIDAEMIA
     Dosage: DOSE 10MG/80MG DAILY
     Route: 048
     Dates: start: 20170210, end: 20170704

REACTIONS (27)
  - Tinnitus [Not Recovered/Not Resolved]
  - Malaise [Unknown]
  - Osteonecrosis [Unknown]
  - Gait disturbance [Unknown]
  - Visual impairment [Unknown]
  - Dizziness [Unknown]
  - Back pain [Unknown]
  - Asthenia [Unknown]
  - Sudden hearing loss [Unknown]
  - Scar [Unknown]
  - Hypoacusis [Not Recovered/Not Resolved]
  - Epistaxis [Unknown]
  - Pain [Unknown]
  - Excessive skin [Unknown]
  - Pyrexia [Unknown]
  - Respiratory tract infection [Unknown]
  - Breast pain [Unknown]
  - Oropharyngeal pain [Unknown]
  - Musculoskeletal chest pain [Unknown]
  - Headache [Unknown]
  - Abdominal pain upper [Unknown]
  - Hyperchlorhydria [Unknown]
  - Pruritus [Unknown]
  - Abdominal discomfort [Unknown]
  - Myalgia [Unknown]
  - Nausea [Unknown]
  - Cough [Unknown]

NARRATIVE: CASE EVENT DATE: 2017
